FAERS Safety Report 9504711 (Version 2)
Quarter: 2013Q3

REPORT INFORMATION
  Report Type: Report from Study
  Country: US (occurrence: US)
  Receive Date: 20130906
  Receipt Date: 20130906
  Transmission Date: 20140515
  Serious: Yes (Hospitalization, Other)
  Sender: FDA-Public Use
  Company Number: US-TAKEDA-TPA2012A00916

PATIENT
  Age: 76 Year
  Sex: Male
  Weight: 105 kg

DRUGS (15)
  1. ALLOPURINOL [Suspect]
     Indication: HYPERURICAEMIA
     Dosage: UNK, QD
     Route: 048
     Dates: start: 20120112
  2. FEBUXOSTAT [Suspect]
     Indication: HYPERURICAEMIA
     Dosage: UNK, QD
     Route: 048
     Dates: start: 20120112
  3. ALLOPURINOL [Suspect]
     Route: 048
     Dates: start: 20110221, end: 20120109
  4. FEBUXOSTAT [Suspect]
     Route: 048
     Dates: start: 20110221, end: 20120109
  5. COLCHICINE [Concomitant]
     Indication: GOUT
     Dosage: 0.6 MG, PRN
     Route: 048
     Dates: start: 2000
  6. COLCHICINE [Concomitant]
     Dosage: 0.6 MG, PRN
     Route: 048
     Dates: start: 2000
  7. TRAZADONE [Concomitant]
     Indication: DEPRESSION
     Dosage: 50 MG, UNK
     Route: 048
     Dates: start: 2009, end: 20120223
  8. RANITIDINE [Concomitant]
     Indication: GASTROOESOPHAGEAL REFLUX DISEASE
     Route: 048
     Dates: start: 2007, end: 20120110
  9. LEVOTHYROXINE [Concomitant]
     Indication: HYPOTHYROIDISM
     Dosage: 50 ?G, QD
     Route: 048
     Dates: start: 1980
  10. NIASPAN [Concomitant]
     Indication: HYPERLIPIDAEMIA
     Dosage: 125 MG, BID
     Route: 048
     Dates: start: 2007
  11. ASPIRIN [Concomitant]
     Indication: PROPHYLAXIS
     Route: 048
     Dates: start: 2000, end: 20120113
  12. PRAVASTATIN [Concomitant]
     Indication: HYPERLIPIDAEMIA
     Dosage: 80 MG, QD
     Route: 048
     Dates: start: 2004
  13. NITROGLYCERIN [Concomitant]
     Indication: ANGINA PECTORIS
     Dosage: 0.4 MG, PRN
     Route: 060
     Dates: start: 2001
  14. LANTUS [Concomitant]
     Indication: DIABETES MELLITUS
     Dosage: 15 IU, QD
     Route: 048
     Dates: start: 20111119
  15. ISOSORBIDE                         /00586302/ [Concomitant]
     Indication: ANGINA PECTORIS
     Dosage: 30 MG, UNK
     Route: 048
     Dates: start: 2004, end: 20120217

REACTIONS (2)
  - Gastrointestinal haemorrhage [Recovered/Resolved]
  - Gastrointestinal polyp haemorrhage [Recovered/Resolved]
